FAERS Safety Report 6542523-5 (Version None)
Quarter: 2010Q1

REPORT INFORMATION
  Report Type: 
  Country: None (occurrence: None)
  Receive Date: 20100119
  Receipt Date: 20100105
  Transmission Date: 20100710
  Serious: Yes (Other)
  Sender: FDA-Public Use
  Company Number: DE-MYLANLABS-2010S1000249

PATIENT
  Sex: Male

DRUGS (1)
  1. METHOTREXATE [Suspect]
     Indication: CROHN'S DISEASE

REACTIONS (5)
  - DEVICE RELATED INFECTION [None]
  - GINGIVITIS [None]
  - MUCOUS MEMBRANE DISORDER [None]
  - OROPHARYNGEAL PAIN [None]
  - URINARY TRACT INFECTION [None]
